FAERS Safety Report 4768966-8 (Version None)
Quarter: 2005Q3

REPORT INFORMATION
  Report Type: 
  Country: None (occurrence: None)
  Receive Date: 20050914
  Receipt Date: 20050831
  Transmission Date: 20060218
  Serious: Yes (Other)
  Sender: FDA-Public Use
  Company Number: 217419

PATIENT
  Age: 53 Year
  Sex: Female

DRUGS (2)
  1. ACTIVASE [Suspect]
     Indication: ISCHAEMIC STROKE
     Dosage: SEE IMAGE
     Route: 030
     Dates: start: 20050316, end: 20050316
  2. ACTIVASE [Suspect]
     Indication: ISCHAEMIC STROKE
     Dosage: SEE IMAGE
     Route: 030
     Dates: start: 20050316, end: 20050316

REACTIONS (1)
  - CONVULSION [None]
